FAERS Safety Report 9237856 (Version 1)
Quarter: 2013Q2

REPORT INFORMATION
  Report Type: Spontaneous
  Country: IE (occurrence: IE)
  Receive Date: 20130418
  Receipt Date: 20130418
  Transmission Date: 20140414
  Serious: Yes (Death, Other)
  Sender: FDA-Public Use
  Company Number: IE-RANBAXY-2009RR-23384

PATIENT
  Age: 45 Year
  Sex: Male

DRUGS (1)
  1. ATORVASTATIN [Suspect]
     Indication: HYPERCHOLESTEROLAEMIA
     Dosage: 10 MG, UNK
     Route: 065

REACTIONS (3)
  - Myopathy [Recovered/Resolved]
  - Vasculitis [Recovered/Resolved]
  - Deafness neurosensory [Recovered/Resolved]
